FAERS Safety Report 24803507 (Version 1)
Quarter: 2025Q1

REPORT INFORMATION
  Report Type: Spontaneous
  Country: US (occurrence: US)
  Receive Date: 20250103
  Receipt Date: 20250103
  Transmission Date: 20250409
  Serious: No
  Sender: SANOFI AVENTIS
  Company Number: US-SA-2025SA002127

PATIENT
  Sex: Female
  Weight: 119.32 kg

DRUGS (9)
  1. DUPIXENT [Suspect]
     Active Substance: DUPILUMAB
     Indication: Dermatitis
     Dosage: 300.000MG QOW
     Route: 058
  2. COSMETICS [Concomitant]
     Active Substance: COSMETICS
  3. CERAVE HEALING [Concomitant]
     Active Substance: PETROLATUM
  4. BENADRYL [Concomitant]
     Active Substance: DIPHENHYDRAMINE HYDROCHLORIDE
  5. FLUOCINONIDE [Concomitant]
     Active Substance: FLUOCINONIDE
  6. DESOXIMETASONE [Concomitant]
     Active Substance: DESOXIMETASONE
  7. TRIAMCINOLONE ACETONIDE [Concomitant]
     Active Substance: TRIAMCINOLONE ACETONIDE
  8. KETOCONAZOLE [Concomitant]
     Active Substance: KETOCONAZOLE
  9. CHLORTHALIDONE [Concomitant]
     Active Substance: CHLORTHALIDONE

REACTIONS (2)
  - Injection site pain [Unknown]
  - Product use in unapproved indication [Unknown]
